FAERS Safety Report 7226162-9 (Version None)
Quarter: 2011Q1

REPORT INFORMATION
  Report Type: 
  Country: None (occurrence: None)
  Receive Date: 20110114
  Receipt Date: 20110105
  Transmission Date: 20110831
  Serious: Yes (Hospitalization)
  Sender: FDA-Public Use
  Company Number: US-BIOGENIDEC-2011BI000770

PATIENT
  Age: 65 Year
  Sex: Female

DRUGS (2)
  1. AVONEX [Suspect]
     Route: 030
     Dates: start: 19980901
  2. AVONEX [Suspect]
     Indication: MULTIPLE SCLEROSIS
     Route: 030
     Dates: start: 19960101

REACTIONS (7)
  - RETROPERITONEAL HAEMORRHAGE [None]
  - BALANCE DISORDER [None]
  - VASCULAR RUPTURE [None]
  - DYSURIA [None]
  - FALL [None]
  - CARDIAC ARREST [None]
  - HEAD INJURY [None]
